FAERS Safety Report 24170311 (Version 1)
Quarter: 2024Q3

REPORT INFORMATION
  Report Type: Spontaneous
  Country: US (occurrence: US)
  Receive Date: 20240803
  Receipt Date: 20240803
  Transmission Date: 20241017
  Serious: Yes (Death, Hospitalization, Other)
  Sender: AMGEN
  Company Number: US-AMGEN-USASP2024153353

PATIENT

DRUGS (1)
  1. PREDNISONE [Suspect]
     Active Substance: PREDNISONE
     Indication: Strongyloidiasis
     Dosage: UNK
     Route: 065

REACTIONS (7)
  - Death [Fatal]
  - Acute respiratory distress syndrome [Unknown]
  - Bacteraemia [Unknown]
  - Peritonitis [Unknown]
  - Meningitis bacterial [Unknown]
  - Unevaluable event [Unknown]
  - Off label use [Unknown]
